FAERS Safety Report 13239123 (Version 2)
Quarter: 2017Q1

REPORT INFORMATION
  Report Type: Spontaneous
  Country: US (occurrence: US)
  Receive Date: 20170216
  Receipt Date: 20170302
  Transmission Date: 20170428
  Serious: No
  Sender: FDA-Public Use
  Company Number: US-009507513-1701USA011612

PATIENT
  Sex: Female

DRUGS (1)
  1. GANIRELIX ACETATE INJECTION [Suspect]
     Active Substance: GANIRELIX ACETATE
     Dosage: 250/0.5 MCG/ML ONCE DAILY
     Route: 058
     Dates: start: 20170119, end: 20170124

REACTIONS (4)
  - Inappropriate schedule of drug administration [Unknown]
  - No adverse event [Unknown]
  - Product closure removal difficult [Unknown]
  - Product container issue [Unknown]

NARRATIVE: CASE EVENT DATE: 201701
